FAERS Safety Report 9883623 (Version 3)
Quarter: 2014Q2

REPORT INFORMATION
  Report Type: Spontaneous
  Country: AR (occurrence: AR)
  Receive Date: 20140210
  Receipt Date: 20140623
  Transmission Date: 20141212
  Serious: Yes (Other)
  Sender: FDA-Public Use
  Company Number: AR-AMGEN-ARGSP2014008842

PATIENT
  Age: 54 Year
  Sex: Female

DRUGS (4)
  1. ENBREL [Suspect]
     Indication: RHEUMATOID ARTHRITIS
     Dosage: 50 MG, WEEKLY
     Route: 065
     Dates: start: 20050121
  2. ENBREL [Suspect]
     Indication: PSORIATIC ARTHROPATHY
  3. DILATREND [Concomitant]
     Dosage: 25 MG, DAILY
  4. NAPRUX                             /00256201/ [Concomitant]
     Indication: PAIN
     Dosage: 500 MG, AS NEEDED

REACTIONS (4)
  - Ovarian cyst [Recovered/Resolved]
  - Hypertension [Unknown]
  - Pyrexia [Recovered/Resolved]
  - Anaemia [Recovered/Resolved]
